FAERS Safety Report 6445085-6 (Version None)
Quarter: 2009Q4

REPORT INFORMATION
  Report Type: 
  Country: None (occurrence: None)
  Receive Date: 20091118
  Receipt Date: 20091105
  Transmission Date: 20100525
  Serious: Yes (Hospitalization, Other)
  Sender: FDA-Public Use
  Company Number: CH-PFIZER INC-2009293349

PATIENT
  Age: 48 Year
  Sex: Male

DRUGS (1)
  1. XANAX [Suspect]
     Dosage: 15 TABLETS OF 1MG, 1X/DAY
     Route: 048
     Dates: start: 20090906, end: 20090906

REACTIONS (2)
  - SOMNOLENCE [None]
  - SUICIDE ATTEMPT [None]
